FAERS Safety Report 14237920 (Version 3)
Quarter: 2018Q1

REPORT INFORMATION
  Report Type: Spontaneous
  Country: JP (occurrence: JP)
  Receive Date: 20171130
  Receipt Date: 20180112
  Transmission Date: 20180508
  Serious: Yes (Death, Hospitalization, Other)
  Sender: FDA-Public Use
  Company Number: JP-AMGEN-JPNSP2017177714

PATIENT
  Age: 56 Year
  Sex: Female

DRUGS (6)
  1. PERJETA [Suspect]
     Active Substance: PERTUZUMAB
     Indication: BREAST CANCER
     Dosage: 840 MG, QD (420MG/14ML)
     Route: 041
     Dates: start: 20170901, end: 20170901
  2. PERJETA [Suspect]
     Active Substance: PERTUZUMAB
     Dosage: 420 MG, Q3WK (420MG/14ML)
     Route: 041
     Dates: start: 20170922, end: 20170929
  3. HERCEPTIN [Suspect]
     Active Substance: TRASTUZUMAB
     Dosage: 6 MG/KG, Q3WK
     Route: 041
     Dates: start: 20170922, end: 20170929
  4. G-LASTA [Suspect]
     Active Substance: PEGFILGRASTIM
     Indication: PRODUCT USED FOR UNKNOWN INDICATION
     Dosage: 3.6 MG, UNK (1 D)
     Route: 058
     Dates: start: 20170925, end: 20170925
  5. DOCETAXEL. [Suspect]
     Active Substance: DOCETAXEL
     Indication: BREAST CANCER
     Dosage: 100 MG, Q3WK
     Route: 041
     Dates: start: 20170901, end: 20170929
  6. HERCEPTIN [Suspect]
     Active Substance: TRASTUZUMAB
     Indication: BREAST CANCER
     Dosage: 8 MG/KG, QD
     Route: 041
     Dates: start: 20170901, end: 20170901

REACTIONS (2)
  - Stevens-Johnson syndrome [Recovering/Resolving]
  - Breast cancer [Fatal]

NARRATIVE: CASE EVENT DATE: 20171013
